FAERS Safety Report 21637207 (Version 1)
Quarter: 2022Q4

REPORT INFORMATION
  Report Type: Spontaneous
  Country: US (occurrence: US)
  Receive Date: 20221124
  Receipt Date: 20221124
  Transmission Date: 20230112
  Serious: Yes (Life-Threatening, Hospitalization, Other)
  Sender: FDA-Public Use
  Company Number: US-SA-2022SA480426

PATIENT
  Age: 79 Year
  Sex: Male
  Weight: 74.7 kg

DRUGS (13)
  1. DOCETAXEL [Suspect]
     Active Substance: DOCETAXEL
     Indication: Neoplasm
     Dosage: UNK UNK, Q3W
     Route: 042
     Dates: start: 20220824
  2. MIRZOTAMAB CLEZUTOCLAX [Suspect]
     Active Substance: MIRZOTAMAB CLEZUTOCLAX
     Indication: Neoplasm
     Dosage: UNK UNK, Q3W
     Route: 042
     Dates: start: 20220824
  3. TYLENOL [Concomitant]
     Active Substance: ACETAMINOPHEN
     Indication: Arthralgia
     Dosage: 650 MG, PRN
     Dates: start: 2018
  4. ALLOPURINOL [Concomitant]
     Active Substance: ALLOPURINOL
     Indication: Gout
     Dosage: 100 MG, QD
     Dates: start: 2009
  5. APIXABAN [Concomitant]
     Active Substance: APIXABAN
     Indication: Atrial fibrillation
     Dosage: 5 MG, QOD
     Dates: start: 202112
  6. CARVEDILOL [Concomitant]
     Active Substance: CARVEDILOL
     Indication: Atrial fibrillation
     Dosage: 25 MG, QOD
     Dates: start: 2014
  7. PROSCAR [Concomitant]
     Active Substance: FINASTERIDE
     Indication: Benign prostatic hyperplasia
     Dosage: 5 MG, QD
     Dates: start: 2016
  8. PRAVACHOL [Concomitant]
     Active Substance: PRAVASTATIN SODIUM
     Indication: Hyperlipidaemia
     Dosage: 40 MG, QD
     Dates: start: 2018
  9. SPIRONOLACTONE [Concomitant]
     Active Substance: SPIRONOLACTONE
     Indication: Oedema peripheral
     Dosage: 25 MG, QOD
     Dates: start: 2018
  10. MORNIFLUMATE [Concomitant]
     Active Substance: MORNIFLUMATE
     Indication: Benign prostatic hyperplasia
     Dosage: 0.4 MG, QD
     Dates: start: 2014
  11. DESYREL [Concomitant]
     Active Substance: TRAZODONE HYDROCHLORIDE
     Indication: Insomnia
     Dosage: 150 MG, QD
     Dates: start: 20220531
  12. PRED MOXI BROM [Concomitant]
     Indication: Cataract
     Dosage: 1 DROP, QD
     Dates: start: 20220817
  13. DEXAMETHASONE [Concomitant]
     Active Substance: DEXAMETHASONE
     Indication: Premedication
     Dosage: 8 MG EVERY 8HRS DAY PRIOR AND DAYS 2-3 POST CHEMOTHERAPY
     Dates: start: 20220823

REACTIONS (10)
  - Pulmonary embolism [Recovered/Resolved]
  - Dyspnoea exertional [Recovered/Resolved]
  - Haemoptysis [Recovered/Resolved]
  - Productive cough [Recovered/Resolved]
  - Hypoxia [Not Recovered/Not Resolved]
  - Confusional state [Unknown]
  - Mental status changes [Unknown]
  - Metastases to central nervous system [Unknown]
  - Dysphagia [Not Recovered/Not Resolved]
  - Pneumonia [Unknown]

NARRATIVE: CASE EVENT DATE: 20220826
